FAERS Safety Report 7251620-0 (Version None)
Quarter: 2011Q1

REPORT INFORMATION
  Report Type: 
  Country: None (occurrence: None)
  Receive Date: 20110128
  Receipt Date: 20110124
  Transmission Date: 20110831
  Serious: Yes (Death)
  Sender: FDA-Public Use
  Company Number: GB-PFIZER INC-2010072004

PATIENT
  Age: 66 Year
  Sex: Male

DRUGS (32)
  1. AUGMENTIN '125' [Concomitant]
     Dosage: UNK
     Route: 048
     Dates: start: 20100505, end: 20100509
  2. LOPERAMIDE [Concomitant]
     Dosage: UNK
     Route: 048
     Dates: start: 20100512
  3. MAGNESIUM GLYCEROPHOSPHATE [Concomitant]
     Dosage: UNK
     Route: 048
     Dates: start: 20100504
  4. ARA-C [Suspect]
     Indication: LEUKAEMIA
     Dosage: UNK
     Route: 058
     Dates: start: 20100401, end: 20100410
  5. ARA-C [Suspect]
     Dosage: 20 MG, 2X/DAY
     Route: 058
     Dates: start: 20100507, end: 20100515
  6. METOCLOPRAMIDE [Concomitant]
     Dosage: UNK
     Route: 048
     Dates: start: 20100507, end: 20100518
  7. VANCOMYCIN [Concomitant]
     Dosage: UNK
     Dates: start: 20100428, end: 20100505
  8. MEROPENEM [Concomitant]
     Dosage: UNK
     Route: 042
     Dates: start: 20100524
  9. TAZOCIN [Concomitant]
     Dosage: UNK
     Route: 042
     Dates: start: 20100520, end: 20100525
  10. THIAMINE [Concomitant]
     Dosage: UNK
     Route: 048
     Dates: start: 20100421
  11. GEMTUZUMAB OZOGAMICIN [Suspect]
     Dosage: 5 MG 1X/TOT
     Route: 042
     Dates: start: 20100507, end: 20100507
  12. DIFFLAM [Concomitant]
     Dosage: UNK
     Route: 048
     Dates: start: 20100518
  13. NYSTATIN [Concomitant]
     Dosage: UNK
     Route: 048
     Dates: start: 20100402
  14. TAZOCIN [Concomitant]
     Dosage: UNK
     Dates: start: 20100428, end: 20100505
  15. NORMAL SALINE [Concomitant]
     Dosage: UNK
     Dates: start: 20100402
  16. ALLOPURINOL [Concomitant]
     Dosage: UNK
     Route: 048
     Dates: start: 20100507
  17. AMIKACIN [Concomitant]
     Dosage: UNK
     Route: 042
     Dates: start: 20100520, end: 20100521
  18. AUGMENTIN '125' [Concomitant]
     Dosage: UNK
     Dates: start: 20100514, end: 20100517
  19. ATORVASTATIN [Concomitant]
     Dosage: UNK
     Route: 048
     Dates: start: 20100402
  20. CARVEDILOL [Concomitant]
     Dosage: UNK
     Route: 048
     Dates: start: 20100421
  21. OMEPRAZOLE [Concomitant]
     Dosage: UNK
     Route: 048
     Dates: start: 20100507, end: 20100511
  22. GEMTUZUMAB OZOGAMICIN [Suspect]
     Dosage: 5 MG 1X/TOT
     Route: 042
     Dates: start: 20100401, end: 20100401
  23. PARACETAMOL [Concomitant]
     Dosage: UNK
     Dates: start: 20100402
  24. PHOSPHATE-SANDOZ [Concomitant]
     Dosage: UNK
     Route: 048
     Dates: start: 20100507
  25. TAZOCIN [Concomitant]
     Dosage: UNK
     Route: 042
     Dates: start: 20100508, end: 20100514
  26. PREDNISOLONE [Concomitant]
     Dosage: UNK
     Route: 048
     Dates: start: 20100421
  27. ACICLOVIR [Concomitant]
     Dosage: UNK
     Route: 048
     Dates: start: 20100402
  28. GEMTUZUMAB OZOGAMICIN [Suspect]
     Dosage: 5 MG, UNK
     Route: 043
     Dates: start: 20100507, end: 20100516
  29. DIGOXIN [Concomitant]
     Dosage: UNK
     Route: 048
     Dates: start: 20100402
  30. NITROGLYCERIN [Concomitant]
     Dosage: UNK
     Route: 060
     Dates: start: 20100428
  31. ONDANSETRON [Concomitant]
     Dosage: UNK
     Route: 048
     Dates: start: 20100511
  32. POSACONAZOLE [Concomitant]
     Dosage: UNK
     Route: 048
     Dates: start: 20100407

REACTIONS (2)
  - DEATH [None]
  - CARDIAC ARREST [None]
